FAERS Safety Report 4608504-3 (Version None)
Quarter: 2005Q1

REPORT INFORMATION
  Report Type: 
  Country: None (occurrence: None)
  Receive Date: 20050315
  Receipt Date: 20050304
  Transmission Date: 20050727
  Serious: Yes (Death)
  Sender: FDA-Public Use
  Company Number: 200511907US

PATIENT
  Age: 82 Year
  Sex: Female

DRUGS (2)
  1. LOVENOX [Suspect]
     Indication: CARDIAC DISORDER
  2. COUMADIN [Concomitant]
     Dosage: DOSE: UNK

REACTIONS (5)
  - ABDOMINAL PAIN LOWER [None]
  - DISSEMINATED INTRAVASCULAR COAGULATION [None]
  - HYPOVOLAEMIC SHOCK [None]
  - RETROPERITONEAL HAEMORRHAGE [None]
  - SEPSIS [None]
